FAERS Safety Report 4449269-8 (Version None)
Quarter: 2004Q3

REPORT INFORMATION
  Report Type: 
  Country: None (occurrence: None)
  Receive Date: 20040910
  Receipt Date: 20040902
  Transmission Date: 20050211
  Serious: Yes (Hospitalization)
  Sender: FDA-Public Use
  Company Number: 2004231527US

PATIENT

DRUGS (1)
  1. BEXTRA [Suspect]

REACTIONS (3)
  - HEADACHE [None]
  - NAUSEA [None]
  - RASH GENERALISED [None]
